FAERS Safety Report 14732853 (Version 4)
Quarter: 2018Q3

REPORT INFORMATION
  Report Type: Spontaneous
  Country: US (occurrence: US)
  Receive Date: 20180409
  Receipt Date: 20180712
  Transmission Date: 20181010
  Serious: Yes (Other)
  Sender: FDA-Public Use
  Company Number: US-PFIZER INC-2018141365

PATIENT
  Age: 17 Year
  Sex: Female
  Weight: 54.42 kg

DRUGS (3)
  1. SERTRALINE HCL [Suspect]
     Active Substance: SERTRALINE HYDROCHLORIDE
     Indication: AUTISM SPECTRUM DISORDER
     Dosage: UNK [LWITH A HALF A CUP OF WATER WITH MEDICATION]
  2. ZOLOFT [Suspect]
     Active Substance: SERTRALINE HYDROCHLORIDE
     Indication: ANXIETY
     Dosage: 50 MG, DAILY (2.5 ML, 50 MG QD )
     Route: 048
     Dates: start: 20080403
  3. SERTRALINE HCL [Suspect]
     Active Substance: SERTRALINE HYDROCHLORIDE
     Indication: ANXIETY
     Dosage: UNK, 1X/DAY, (2.5ML IN 4 OUNCES OF WATER)
     Route: 048
     Dates: start: 20180404

REACTIONS (3)
  - Dysgeusia [Recovered/Resolved]
  - Feeling abnormal [Unknown]
  - Retching [Unknown]

NARRATIVE: CASE EVENT DATE: 20180404
